FAERS Safety Report 10192780 (Version 2)
Quarter: 2014Q2

REPORT INFORMATION
  Report Type: Spontaneous
  Country: FR (occurrence: FR)
  Receive Date: 20140523
  Receipt Date: 20140523
  Transmission Date: 20141212
  Serious: Yes (Hospitalization, Disabling)
  Sender: FDA-Public Use
  Company Number: FR-PFIZER INC-FR-WYE-G05188809

PATIENT
  Age: 45 Year
  Sex: Female
  Weight: 76 kg

DRUGS (5)
  1. EFFEXOR LP [Suspect]
     Indication: DEPRESSION
     Dosage: 75 MG, DAILY
     Route: 048
     Dates: start: 200709, end: 200807
  2. EFFEXOR LP [Suspect]
     Indication: PHOBIA OF FLYING
     Dosage: 37.5 MG, 1X/DAY
     Route: 048
     Dates: start: 200807
  3. EFFEXOR [Suspect]
     Dosage: 75 MG, 1X/DAY
     Route: 048
     Dates: start: 200801, end: 200806
  4. MERCILON [Suspect]
     Indication: CONTRACEPTION
     Dosage: UNK
     Route: 048
     Dates: end: 200902
  5. XANAX [Concomitant]
     Dosage: 0.25 MG, UP TO 3X/DAY
     Route: 048

REACTIONS (12)
  - Cerebral venous thrombosis [Recovered/Resolved with Sequelae]
  - Weight increased [Unknown]
  - Papilloedema [Recovered/Resolved with Sequelae]
  - Drug withdrawal syndrome [Recovered/Resolved with Sequelae]
  - Intracranial pressure increased [Recovered/Resolved with Sequelae]
  - Visual acuity reduced [Not Recovered/Not Resolved]
  - Arteriovenous fistula [Recovered/Resolved with Sequelae]
  - Fatigue [Recovered/Resolved]
  - Increased appetite [Recovered/Resolved]
  - Nausea [Recovered/Resolved]
  - Accommodation disorder [Unknown]
  - Tinnitus [Unknown]
